FAERS Safety Report 14803611 (Version 1)
Quarter: 2018Q2

REPORT INFORMATION
  Report Type: Spontaneous
  Country: US (occurrence: US)
  Receive Date: 20180425
  Receipt Date: 20180425
  Transmission Date: 20180711
  Serious: Yes (Other)
  Sender: FDA-Public Use
  Company Number: US-STRIDES ARCOLAB LIMITED-2018SP001532

PATIENT

DRUGS (1)
  1. IBUPROFEN TABLETS, USP 800 MG [Suspect]
     Active Substance: IBUPROFEN
     Indication: PRODUCT USED FOR UNKNOWN INDICATION
     Dosage: 2 IBUPROFEN 800 MG TABLETS, AT BED TIME
     Route: 065

REACTIONS (1)
  - Gastric perforation [Unknown]
